FAERS Safety Report 11651499 (Version 2)
Quarter: 2015Q4

REPORT INFORMATION
  Report Type: Spontaneous
  Country: US (occurrence: None)
  Receive Date: 20151020
  Receipt Date: 20151102
  Transmission Date: 20160304
  Serious: Yes (Other)
  Sender: FDA-Public Use
  Company Number: US2015143546

PATIENT
  Age: 67 Year
  Sex: Male

DRUGS (1)
  1. BIOTENE FRESH MINT ORIGINAL (SODIUM FLUORIDE) [Suspect]
     Active Substance: SODIUM FLUORIDE
     Indication: PRODUCT USED FOR UNKNOWN INDICATION
     Dates: start: 201510

REACTIONS (3)
  - Stomatitis [None]
  - Angioedema [None]
  - Hypersensitivity [None]
